FAERS Safety Report 5878592-5 (Version None)
Quarter: 2008Q3

REPORT INFORMATION
  Report Type: 
  Country: None (occurrence: None)
  Receive Date: 20080909
  Receipt Date: 20080826
  Transmission Date: 20090109
  Serious: Yes (Other)
  Sender: FDA-Public Use
  Company Number: 2008000828

PATIENT
  Age: 60 Year
  Sex: Male

DRUGS (6)
  1. ERLOTINIB (ERLOTINIB HCL) (TABLET) (ERLOTINIB HCL) [Suspect]
     Indication: LUNG ADENOCARCINOMA
     Dosage: (150 MG, QD), ORAL
     Route: 048
     Dates: start: 20080220, end: 20080331
  2. TS-1 [Concomitant]
  3. IRINOTECAN HCL [Concomitant]
  4. MUCOSTA (REBAMIPIDE) [Concomitant]
  5. ETODOLAC [Concomitant]
  6. MAGNESIUM OXIDE (MAGNESIUM OXIDE) [Concomitant]

REACTIONS (4)
  - BONE MARROW FAILURE [None]
  - DECREASED APPETITE [None]
  - PULMONARY EMBOLISM [None]
  - PYREXIA [None]
